FAERS Safety Report 11086020 (Version 2)
Quarter: 2015Q2

REPORT INFORMATION
  Report Type: Spontaneous
  Country: US (occurrence: US)
  Receive Date: 20150503
  Receipt Date: 20150525
  Transmission Date: 20150821
  Serious: Yes (Hospitalization)
  Sender: FDA-Public Use
  Company Number: US-JNJFOC-20150320581

PATIENT
  Age: 75 Year
  Sex: Female

DRUGS (2)
  1. XARELTO [Suspect]
     Active Substance: RIVAROXABAN
     Indication: PRODUCT USED FOR UNKNOWN INDICATION
     Route: 048
  2. SUTENT [Suspect]
     Active Substance: SUNITINIB MALATE
     Indication: MALIGNANT NEOPLASM OF ISLETS OF LANGERHANS
     Route: 065
     Dates: start: 20140512

REACTIONS (10)
  - Renal function test abnormal [Unknown]
  - Headache [Unknown]
  - Conjunctival haemorrhage [Recovered/Resolved]
  - Vomiting [Unknown]
  - Blood pressure increased [Unknown]
  - Insomnia [Unknown]
  - Asthenia [Unknown]
  - Dizziness [Unknown]
  - Decreased appetite [Unknown]
  - Pruritus generalised [Unknown]

NARRATIVE: CASE EVENT DATE: 20150119
